FAERS Safety Report 4805843-8 (Version None)
Quarter: 2005Q4

REPORT INFORMATION
  Report Type: 
  Country: None (occurrence: None)
  Receive Date: 20051018
  Receipt Date: 20051003
  Transmission Date: 20060501
  Serious: Yes (Other)
  Sender: FDA-Public Use
  Company Number: 2005AP000771

PATIENT
  Age: 57 Year
  Sex: Male

DRUGS (3)
  1. TICLOPIDINE HCL [Suspect]
     Indication: STENT PLACEMENT
     Dosage: 250 MG; BID; PO
     Route: 048
     Dates: start: 20050802
  2. VYTORIN [Suspect]
     Indication: HYPERCHOLESTEROLAEMIA
     Dates: start: 20050701, end: 20050922
  3. ASPIRIN [Concomitant]

REACTIONS (9)
  - ALANINE AMINOTRANSFERASE INCREASED [None]
  - ASPARTATE AMINOTRANSFERASE INCREASED [None]
  - BLOOD ALKALINE PHOSPHATASE INCREASED [None]
  - FATIGUE [None]
  - GAMMA-GLUTAMYLTRANSFERASE INCREASED [None]
  - HAEMOGLOBIN DECREASED [None]
  - MONOCYTE COUNT DECREASED [None]
  - RED BLOOD CELL COUNT DECREASED [None]
  - WHITE BLOOD CELL COUNT DECREASED [None]
